FAERS Safety Report 17569967 (Version 2)
Quarter: 2020Q2

REPORT INFORMATION
  Report Type: Spontaneous
  Country: US (occurrence: US)
  Receive Date: 20200323
  Receipt Date: 20200610
  Transmission Date: 20200713
  Serious: Yes (Other)
  Sender: FDA-Public Use
  Company Number: US-BEH-2020114628

PATIENT
  Age: 39 Year
  Sex: Female

DRUGS (3)
  1. HAEGARDA [Suspect]
     Active Substance: HUMAN C1-ESTERASE INHIBITOR
     Indication: HEREDITARY ANGIOEDEMA
     Dosage: 5700 INTERNATIONAL UNIT, BID
     Route: 058
     Dates: start: 20190509
  2. HAEGARDA [Suspect]
     Active Substance: HUMAN C1-ESTERASE INHIBITOR
     Dosage: 5700 INTERNATIONAL UNIT, BID
     Route: 058
     Dates: start: 20190906
  3. HAEGARDA [Suspect]
     Active Substance: HUMAN C1-ESTERASE INHIBITOR
     Indication: PROPHYLAXIS
     Dosage: 5700 INTERNATIONAL UNIT, BIW
     Route: 058
     Dates: start: 20190813

REACTIONS (5)
  - Intentional overdose [Unknown]
  - Autoimmune disorder [Unknown]
  - No adverse event [Unknown]
  - Weight decreased [Unknown]
  - Administration site pain [Unknown]
